FAERS Safety Report 24982181 (Version 1)
Quarter: 2025Q1

REPORT INFORMATION
  Report Type: Report from Study
  Country: ZA (occurrence: ZA)
  Receive Date: 20250218
  Receipt Date: 20250218
  Transmission Date: 20250408
  Serious: Yes (Other)
  Sender: NOVARTIS
  Company Number: ZA-002147023-NVSC2025ZA024631

PATIENT
  Age: 57 Year
  Sex: Male

DRUGS (1)
  1. INCLISIRAN [Suspect]
     Active Substance: INCLISIRAN
     Indication: Primary hypercholesterolaemia
     Route: 058

REACTIONS (13)
  - Laboratory test abnormal [Unknown]
  - Electrocardiogram abnormal [Unknown]
  - Blood 25-hydroxycholecalciferol decreased [Unknown]
  - Blood uric acid increased [Unknown]
  - Creatinine urine increased [Unknown]
  - Albumin urine present [Unknown]
  - Carbon dioxide decreased [Unknown]
  - Blood creatine phosphokinase MB increased [Unknown]
  - Glycosylated haemoglobin increased [Unknown]
  - Blood glucose increased [Unknown]
  - Serum ferritin increased [Unknown]
  - C-reactive protein increased [Unknown]
  - Troponin increased [Unknown]

NARRATIVE: CASE EVENT DATE: 20201006
